FAERS Safety Report 24789080 (Version 1)
Quarter: 2024Q4

REPORT INFORMATION
  Report Type: Spontaneous
  Country: US (occurrence: None)
  Receive Date: 20241228
  Receipt Date: 20241228
  Transmission Date: 20250114
  Serious: Yes (Other)
  Sender: Public
  Company Number: None

PATIENT
  Age: 47 Year
  Sex: Female
  Weight: 51.75 kg

DRUGS (1)
  1. LATISSE [Suspect]
     Active Substance: BIMATOPROST
     Indication: Growth of eyelashes
     Dates: start: 20230423, end: 20241015

REACTIONS (3)
  - Collagen disorder [None]
  - Fat tissue decreased [None]
  - Dark circles under eyes [None]

NARRATIVE: CASE EVENT DATE: 20220920
